FAERS Safety Report 9086687 (Version 1)
Quarter: 2013Q1

REPORT INFORMATION
  Report Type: Spontaneous
  Country: CO (occurrence: CO)
  Receive Date: 20130131
  Receipt Date: 20130131
  Transmission Date: 20140127
  Serious: Yes (Other)
  Sender: FDA-Public Use
  Company Number: CO-PFIZER INC-2013038379

PATIENT
  Age: 86 Year
  Sex: Female

DRUGS (2)
  1. NORVAS [Suspect]
     Indication: HYPERTENSION
     Dosage: 5 MG, 1X/DAY
     Route: 048
     Dates: start: 1993
  2. BETALOC [Concomitant]
     Indication: HYPERTENSION
     Dosage: 50 MG, UNK
     Route: 065
     Dates: start: 1998

REACTIONS (4)
  - Diabetes mellitus [Unknown]
  - Dermatitis [Recovering/Resolving]
  - Coagulopathy [Unknown]
  - Blood cholesterol increased [Unknown]
